FAERS Safety Report 9387808 (Version 3)
Quarter: 2013Q3

REPORT INFORMATION
  Report Type: Spontaneous
  Country: AU (occurrence: AU)
  Receive Date: 20130708
  Receipt Date: 20130719
  Transmission Date: 20140515
  Serious: Yes (Hospitalization)
  Sender: FDA-Public Use
  Company Number: AU-BAXTER-2013BAX007764

PATIENT
  Age: 30 Year
  Sex: Female
  Weight: 80 kg

DRUGS (5)
  1. KIOVIG NORMAL IMMUNOGLOBULIN (HUMAN) 20G/200ML FOR INTRAVENOUS USE INJ [Suspect]
     Indication: IMMUNE THROMBOCYTOPENIC PURPURA
     Route: 042
     Dates: start: 20130220, end: 20130220
  2. KIOVIG NORMAL IMMUNOGLOBULIN (HUMAN) 2.5G/25ML FOR INTRAVENOUS USE INJ [Suspect]
     Indication: IMMUNE THROMBOCYTOPENIC PURPURA
     Route: 042
     Dates: start: 20130220, end: 20130220
  3. KIOVIG NORMAL IMMUNOGLOBULIN (HUMAN) 10G/100ML FOR INTRAVENOUS USE INJ [Suspect]
     Indication: IMMUNE THROMBOCYTOPENIC PURPURA
     Route: 042
     Dates: start: 20130220, end: 20130220
  4. INTRAGAM [Suspect]
     Indication: IMMUNE THROMBOCYTOPENIC PURPURA
     Route: 065
     Dates: start: 20130221
  5. PREDNISOLONE [Concomitant]
     Indication: IMMUNE THROMBOCYTOPENIC PURPURA
     Route: 048

REACTIONS (7)
  - Headache [Recovered/Resolved]
  - Dyspnoea [Recovered/Resolved]
  - Pyrexia [Recovered/Resolved]
  - Musculoskeletal stiffness [Recovered/Resolved]
  - Meningitis aseptic [Recovered/Resolved]
  - Rash [Unknown]
  - Exposure during pregnancy [Unknown]
